FAERS Safety Report 6399359-8 (Version None)
Quarter: 2009Q4

REPORT INFORMATION
  Report Type: 
  Country: None (occurrence: None)
  Receive Date: 20091014
  Receipt Date: 20091002
  Transmission Date: 20100525
  Serious: No
  Sender: FDA-Public Use
  Company Number: JP-PFIZER INC-2009252877

PATIENT
  Age: 74 Year

DRUGS (1)
  1. ZITHROMAC SR [Suspect]
     Indication: OROPHARYNGEAL PAIN
     Dosage: UNK
     Route: 048

REACTIONS (2)
  - DIARRHOEA [None]
  - DIZZINESS POSTURAL [None]
